FAERS Safety Report 21844233 (Version 1)
Quarter: 2023Q1

REPORT INFORMATION
  Report Type: Report from Study
  Country: US (occurrence: US)
  Receive Date: 20230110
  Receipt Date: 20230110
  Transmission Date: 20230417
  Serious: Yes (Death)
  Sender: FDA-Public Use
  Company Number: US-TAIHO-2023-000075

PATIENT
  Age: 83 Year
  Sex: Female
  Weight: 44.0 kg

DRUGS (1)
  1. LONSURF [Suspect]
     Active Substance: TIPIRACIL HYDROCHLORIDE\TRIFLURIDINE
     Indication: Colon cancer
     Dosage: CYCLE UNKNOWN
     Route: 048
     Dates: start: 20220927

REACTIONS (1)
  - Death [Fatal]

NARRATIVE: CASE EVENT DATE: 20221206
